FAERS Safety Report 5809062-8 (Version None)
Quarter: 2008Q3

REPORT INFORMATION
  Report Type: 
  Country: None (occurrence: None)
  Receive Date: 20080714
  Receipt Date: 20080707
  Transmission Date: 20090109
  Serious: Yes (Hospitalization)
  Sender: FDA-Public Use
  Company Number: GB-PURDUE-GBR_2008_0004202

PATIENT
  Sex: Male

DRUGS (1)
  1. MST CONTINUS TABLETS 60 MG [Suspect]
     Indication: ARTHRALGIA
     Dosage: 60 MG, BID
     Route: 065

REACTIONS (4)
  - CONFUSIONAL STATE [None]
  - HALLUCINATION [None]
  - INCORRECT DOSE ADMINISTERED [None]
  - SOMNOLENCE [None]
